FAERS Safety Report 8419981-4 (Version None)
Quarter: 2012Q2

REPORT INFORMATION
  Report Type: 
  Country: None (occurrence: None)
  Receive Date: 20120607
  Receipt Date: 20120602
  Transmission Date: 20120825
  Serious: Yes (Other)
  Sender: FDA-Public Use
  Company Number: US-ROCHE-1074832

PATIENT
  Sex: Female

DRUGS (3)
  1. RIBAVIRIN [Suspect]
     Indication: HEPATITIS C
     Dates: start: 20120307
  2. PEGASYS [Suspect]
     Indication: HEPATITIS C
     Dates: start: 20120307
  3. TELAPREVIR [Suspect]
     Indication: HEPATITIS C
     Dates: start: 20120307

REACTIONS (4)
  - RASH GENERALISED [None]
  - RASH [None]
  - HYPERSENSITIVITY [None]
  - EYE SWELLING [None]
